FAERS Safety Report 16715727 (Version 4)
Quarter: 2019Q3

REPORT INFORMATION
  Report Type: Spontaneous
  Country: US (occurrence: US)
  Receive Date: 20190819
  Receipt Date: 20190905
  Transmission Date: 20191005
  Serious: Yes (Other)
  Sender: FDA-Public Use
  Company Number: US-PFIZER INC-2019353691

PATIENT
  Age: 53 Year
  Sex: Female

DRUGS (1)
  1. GABAPENTIN. [Suspect]
     Active Substance: GABAPENTIN
     Dosage: 200 MG, 1X/DAY (2 CAPSULES AT NIGHT )
     Dates: start: 2015, end: 2017

REACTIONS (3)
  - Drug ineffective [Unknown]
  - Thermal burn [Unknown]
  - Gait inability [Unknown]

NARRATIVE: CASE EVENT DATE: 2016
